FAERS Safety Report 4434151-2 (Version None)
Quarter: 2004Q3

REPORT INFORMATION
  Report Type: 
  Country: None (occurrence: None)
  Receive Date: 20040825
  Receipt Date: 20040811
  Transmission Date: 20050211
  Serious: Yes (Other)
  Sender: FDA-Public Use
  Company Number: GBS040815405

PATIENT
  Age: 39 Year
  Sex: Female

DRUGS (1)
  1. HUMALOG [Suspect]
     Indication: DIABETES MELLITUS
     Dosage: 44 U DAY
     Dates: start: 19950101

REACTIONS (4)
  - CAESAREAN SECTION [None]
  - DRUG EXPOSURE DURING PREGNANCY [None]
  - PRE-ECLAMPSIA [None]
  - PREMATURE BABY [None]
